FAERS Safety Report 4826106-0 (Version None)
Quarter: 2005Q4

REPORT INFORMATION
  Report Type: 
  Country: None (occurrence: None)
  Receive Date: 20051111
  Receipt Date: 20051003
  Transmission Date: 20060501
  Serious: Yes (Hospitalization, Other)
  Sender: FDA-Public Use
  Company Number: FR-BRISTOL-MYERS SQUIBB COMPANY-13133541

PATIENT
  Age: 45 Year
  Sex: Female
  Weight: 53 kg

DRUGS (7)
  1. TAXOL [Suspect]
     Indication: BRONCHIAL CARCINOMA
     Route: 042
     Dates: start: 20050401, end: 20050801
  2. PARAPLATIN [Suspect]
     Indication: BRONCHIAL CARCINOMA
     Route: 042
     Dates: start: 20050401, end: 20050801
  3. XANAX [Suspect]
     Route: 048
     Dates: start: 20050603, end: 20050826
  4. LEVOTHYROX [Concomitant]
     Dates: start: 20050415
  5. NEXIUM [Concomitant]
     Dates: end: 20050814
  6. GRANOCYTE [Concomitant]
     Dates: start: 20050601, end: 20050601
  7. GAVISCON [Concomitant]

REACTIONS (5)
  - DERMATITIS BULLOUS [None]
  - PYREXIA [None]
  - RASH ERYTHEMATOUS [None]
  - RASH MACULO-PAPULAR [None]
  - TOXIC EPIDERMAL NECROLYSIS [None]
